FAERS Safety Report 6451422-9 (Version None)
Quarter: 2009Q4

REPORT INFORMATION
  Report Type: 
  Country: None (occurrence: None)
  Receive Date: 20091123
  Receipt Date: 20091112
  Transmission Date: 20100525
  Serious: Yes (Other)
  Sender: FDA-Public Use
  Company Number: JP-JNJFOC-20091102273

PATIENT
  Sex: Female
  Weight: 47 kg

DRUGS (20)
  1. GOLIMUMAB [Suspect]
     Route: 058
     Dates: start: 20081224
  2. GOLIMUMAB [Suspect]
     Route: 058
     Dates: start: 20081224
  3. GOLIMUMAB [Suspect]
     Route: 058
     Dates: start: 20081224
  4. GOLIMUMAB [Suspect]
     Route: 058
     Dates: start: 20081224
  5. GOLIMUMAB [Suspect]
     Route: 058
     Dates: start: 20081224
  6. GOLIMUMAB [Suspect]
     Route: 058
     Dates: start: 20081224
  7. GOLIMUMAB [Suspect]
     Route: 058
     Dates: start: 20081224
  8. GOLIMUMAB [Suspect]
     Route: 058
     Dates: start: 20081224
  9. GOLIMUMAB [Suspect]
     Route: 058
     Dates: start: 20081224
  10. GOLIMUMAB [Suspect]
     Route: 058
     Dates: start: 20081224
  11. GOLIMUMAB [Suspect]
     Route: 058
     Dates: start: 20081224
  12. GOLIMUMAB [Suspect]
     Indication: RHEUMATOID ARTHRITIS
     Route: 058
     Dates: start: 20081224
  13. METHOTREXATE [Suspect]
     Indication: RHEUMATOID ARTHRITIS
  14. FOLIAMIN [Concomitant]
     Indication: PROPHYLAXIS
     Route: 048
  15. CELECOX [Concomitant]
     Indication: RHEUMATOID ARTHRITIS
     Route: 048
  16. REBAMIPIDE [Concomitant]
     Indication: GASTRITIS PROPHYLAXIS
     Route: 048
  17. MYSLEE [Concomitant]
     Indication: INSOMNIA
     Route: 048
  18. HYALEIN [Concomitant]
     Indication: DRY EYE
     Route: 031
  19. MOHRUS TAPE [Concomitant]
     Indication: SCIATICA
     Route: 062
  20. SOFT SANTEAR [Concomitant]
     Indication: DRY EYE

REACTIONS (1)
  - PNEUMONIA [None]
